FAERS Safety Report 16301916 (Version 1)
Quarter: 2019Q2

REPORT INFORMATION
  Report Type: Spontaneous
  Country: US (occurrence: US)
  Receive Date: 20190512
  Receipt Date: 20190512
  Transmission Date: 20190711
  Serious: Yes (Hospitalization)
  Sender: FDA-Public Use
  Company Number: PHHY2019US102864

PATIENT
  Age: 38 Year
  Sex: Female

DRUGS (1)
  1. ENOXAPARIN [Suspect]
     Active Substance: ENOXAPARIN
     Indication: THROMBOSIS PROPHYLAXIS
     Route: 065

REACTIONS (19)
  - Nausea [Unknown]
  - Hypotension [Unknown]
  - Multiple organ dysfunction syndrome [Unknown]
  - Pyrexia [Recovered/Resolved]
  - Weight decreased [Unknown]
  - Vomiting [Unknown]
  - Facial paralysis [Recovered/Resolved]
  - Subdural haematoma [Recovered/Resolved]
  - Tachycardia [Unknown]
  - Antiphospholipid syndrome [Unknown]
  - Decreased appetite [Unknown]
  - Hepatic enzyme increased [Recovered/Resolved]
  - Myalgia [Recovered/Resolved]
  - Neurologic neglect syndrome [Recovered/Resolved]
  - Muscular weakness [Unknown]
  - Systemic inflammatory response syndrome [Unknown]
  - Subarachnoid haemorrhage [Recovered/Resolved]
  - Cytomegalovirus infection [Recovered/Resolved]
  - Fatigue [Recovered/Resolved]
